FAERS Safety Report 23635573 (Version 1)
Quarter: 2024Q1

REPORT INFORMATION
  Report Type: Spontaneous
  Country: AT (occurrence: AT)
  Receive Date: 20240315
  Receipt Date: 20240315
  Transmission Date: 20240410
  Serious: Yes (Other)
  Sender: FDA-Public Use
  Company Number: AT-IPSEN Group, Research and Development-2024-03788

PATIENT
  Age: 69 Year
  Sex: Female

DRUGS (3)
  1. CABOMETYX [Suspect]
     Active Substance: CABOZANTINIB S-MALATE
     Indication: Clear cell renal cell carcinoma
     Dosage: 20 MG, QD
     Route: 065
     Dates: start: 20210705
  2. CABOMETYX [Suspect]
     Active Substance: CABOZANTINIB S-MALATE
     Route: 065
  3. CABOMETYX [Suspect]
     Active Substance: CABOZANTINIB S-MALATE
     Dosage: 60 MG, QD
     Route: 065

REACTIONS (9)
  - Submandibular abscess [Unknown]
  - Left ventricular hypertrophy [Unknown]
  - Neuropathy peripheral [Unknown]
  - Pancreatic mass [Unknown]
  - Platelet count decreased [Unknown]
  - Taste disorder [Unknown]
  - Acute kidney injury [Unknown]
  - Hypertension [Unknown]
  - Pain in extremity [Unknown]

NARRATIVE: CASE EVENT DATE: 20231201
